FAERS Safety Report 9101436 (Version 1)
Quarter: 2013Q1

REPORT INFORMATION
  Report Type: Spontaneous
  Country: US (occurrence: US)
  Receive Date: 20130215
  Receipt Date: 20130215
  Transmission Date: 20140127
  Serious: No
  Sender: FDA-Public Use
  Company Number: US-BAYER-2013-019664

PATIENT
  Age: 75 Year
  Sex: Female
  Weight: 115 kg

DRUGS (1)
  1. ALEVE CAPLET/TABLET,MIDOL EXTENDED RELIEF CAPLET [Suspect]
     Dosage: 2 DF, BID
     Route: 048
     Dates: start: 201206, end: 201206

REACTIONS (2)
  - Abdominal discomfort [Recovered/Resolved]
  - Overdose [None]
